FAERS Safety Report 10183443 (Version 7)
Quarter: 2014Q4

REPORT INFORMATION
  Report Type: Spontaneous
  Country: US (occurrence: US)
  Receive Date: 20140520
  Receipt Date: 20141021
  Transmission Date: 20150528
  Serious: Yes (Hospitalization, Disabling, Other)
  Sender: FDA-Public Use
  Company Number: US-009507513-1405USA008202

PATIENT
  Sex: Female

DRUGS (3)
  1. JANUVIA [Suspect]
     Active Substance: SITAGLIPTIN PHOSPHATE
     Dosage: 25 MG/ ONCE DAILY
     Route: 048
  2. JANUVIA [Suspect]
     Active Substance: SITAGLIPTIN PHOSPHATE
     Dosage: UNK
     Route: 048
     Dates: start: 2008, end: 201405
  3. JANUVIA [Suspect]
     Active Substance: SITAGLIPTIN PHOSPHATE
     Indication: TYPE 2 DIABETES MELLITUS
     Dosage: 25 MG/ ONCE DAILY
     Route: 048
     Dates: end: 2014

REACTIONS (13)
  - Haemorrhage [Unknown]
  - Pneumonia [Unknown]
  - Walking disability [Unknown]
  - Fall [Unknown]
  - Asthenia [Unknown]
  - Renal failure [Unknown]
  - Hepatic failure [Unknown]
  - Feeding disorder [Unknown]
  - Transfusion [Unknown]
  - Adverse event [Unknown]
  - Pancreatitis [Unknown]
  - Lung abscess [Unknown]
  - Apathy [Unknown]

NARRATIVE: CASE EVENT DATE: 2008
